FAERS Safety Report 24596809 (Version 2)
Quarter: 2024Q4

REPORT INFORMATION
  Report Type: Spontaneous
  Country: US (occurrence: US)
  Receive Date: 20241110
  Receipt Date: 20241110
  Transmission Date: 20250114
  Serious: No
  Sender: SANOFI AVENTIS
  Company Number: US-SA-2024SA303803

PATIENT
  Age: 83 Year
  Sex: Female

DRUGS (3)
  1. DUPIXENT [Suspect]
     Active Substance: DUPILUMAB
     Indication: Bronchitis
     Dosage: 300 MG, QOW
     Route: 058
     Dates: start: 20230629, end: 2024
  2. CEFDINIR MONOHYDRATE [Concomitant]
     Active Substance: CEFDINIR MONOHYDRATE
     Dosage: UNK
  3. BROMPHEN [BROMPHENIRAMINE MALEATE] [Concomitant]
     Dosage: UNK

REACTIONS (1)
  - Product use in unapproved indication [Unknown]

NARRATIVE: CASE EVENT DATE: 20230629
